FAERS Safety Report 13781793 (Version 1)
Quarter: 2017Q3

REPORT INFORMATION
  Report Type: Spontaneous
  Country: GB (occurrence: GB)
  Receive Date: 20170724
  Receipt Date: 20170724
  Transmission Date: 20171127
  Serious: Yes (Hospitalization, Disabling)
  Sender: FDA-Public Use
  Company Number: GB-ELI_LILLY_AND_COMPANY-GB201707005936

PATIENT
  Age: 50 Year
  Sex: Female
  Weight: 94 kg

DRUGS (10)
  1. FOLIC ACID. [Concomitant]
     Active Substance: FOLIC ACID
     Dosage: UNK, UNKNOWN
  2. MORPHINE SULPHATE [Concomitant]
     Active Substance: MORPHINE SULFATE
  3. GABAPENTIN. [Concomitant]
     Active Substance: GABAPENTIN
  4. PREDNISOLONE. [Concomitant]
     Active Substance: PREDNISOLONE
  5. FULTIUM D3 [Concomitant]
     Active Substance: CHOLECALCIFEROL
     Dosage: UNK, UNKNOWN
  6. OMEPRAZOLE. [Concomitant]
     Active Substance: OMEPRAZOLE
  7. VENLAFAXINE [Concomitant]
     Active Substance: VENLAFAXINE HYDROCHLORIDE
  8. TRULICITY [Suspect]
     Active Substance: DULAGLUTIDE
     Indication: HYPERGLYCAEMIA
     Dosage: 1.5 MG, UNKNOWN
     Route: 058
     Dates: start: 20170626, end: 20170626
  9. BISOPROLOL [Concomitant]
     Active Substance: BISOPROLOL
     Dosage: UNK, UNKNOWN
  10. METFORMIN [Concomitant]
     Active Substance: METFORMIN HYDROCHLORIDE

REACTIONS (5)
  - Headache [Not Recovered/Not Resolved]
  - Diarrhoea [Recovered/Resolved]
  - Vomiting [Recovered/Resolved]
  - Nausea [Unknown]
  - Dizziness [Not Recovered/Not Resolved]

NARRATIVE: CASE EVENT DATE: 20170627
